FAERS Safety Report 24097876 (Version 2)
Quarter: 2024Q3

REPORT INFORMATION
  Report Type: Report from Study
  Country: US (occurrence: US)
  Receive Date: 20240716
  Receipt Date: 20240903
  Transmission Date: 20241017
  Serious: Yes (Other)
  Sender: OTSUKA
  Company Number: US-MMM-MJR7VF35

PATIENT
  Age: 33 Year
  Sex: Female
  Weight: 86.2 kg

DRUGS (35)
  1. TOLVAPTAN [Suspect]
     Active Substance: TOLVAPTAN
     Indication: Congenital cystic kidney disease
     Dosage: 45 MG, QD (EVERY MORNING)
     Route: 048
     Dates: start: 20230509
  2. TOLVAPTAN [Suspect]
     Active Substance: TOLVAPTAN
     Dosage: 15 MG, QD (IN THE EVENING)
     Route: 048
     Dates: start: 20230509
  3. TOLVAPTAN [Suspect]
     Active Substance: TOLVAPTAN
     Dosage: 15 MG, QD (IN THE MORNING)
     Route: 065
     Dates: start: 20220526
  4. TOLVAPTAN [Suspect]
     Active Substance: TOLVAPTAN
     Dosage: 15 MG, QD (IN THE EVENING)
     Route: 065
     Dates: start: 20220526
  5. ABILIFY [Concomitant]
     Active Substance: ARIPIPRAZOLE
     Indication: Product used for unknown indication
     Dosage: 2.5 MG, QD (EVERY NIGHT)
     Route: 048
     Dates: start: 20230822
  6. ABILIFY [Concomitant]
     Active Substance: ARIPIPRAZOLE
     Dosage: 1 DF, QD (5 MG TABLET AT BEDTIME)
     Route: 048
     Dates: start: 20230124
  7. PROVENTIL HFA [Concomitant]
     Active Substance: ALBUTEROL SULFATE
     Indication: Product used for unknown indication
     Dosage: 108 (90 BASE) MCG/ACT INHALER (1 PUFF EVERY 6 H)
     Route: 045
     Dates: start: 20230105
  8. NORVASC [Concomitant]
     Active Substance: AMLODIPINE BESYLATE
     Indication: Product used for unknown indication
     Dosage: 1 DF, QD (5 MG)
     Route: 048
     Dates: start: 20231109
  9. NORVASC [Concomitant]
     Active Substance: AMLODIPINE BESYLATE
     Dosage: 5 MG
     Route: 048
     Dates: start: 20220406
  10. BUSPAR [Concomitant]
     Active Substance: BUSPIRONE HYDROCHLORIDE
     Indication: Anxiety
     Dosage: 1 DF, BID (15 MG)
     Route: 048
     Dates: start: 20230802
  11. CHLORHEXIDINE GLUCONATE [Concomitant]
     Active Substance: CHLORHEXIDINE GLUCONATE
     Indication: Product used for unknown indication
     Dosage: UNK
     Route: 065
  12. COMBIVENT [Concomitant]
     Active Substance: ALBUTEROL SULFATE\IPRATROPIUM BROMIDE
     Indication: Product used for unknown indication
     Dosage: 20-100 (AER)
     Route: 065
  13. PRINIVIL [Concomitant]
     Active Substance: LISINOPRIL
     Indication: Product used for unknown indication
     Dosage: 1 DF, QD (20 MG EVERY NIGHT)
     Route: 048
     Dates: start: 20240209
  14. OXYCODONE [Concomitant]
     Active Substance: OXYCODONE
     Indication: Product used for unknown indication
     Dosage: 5 MG
     Route: 065
  15. TOPAMAX [Concomitant]
     Active Substance: TOPIRAMATE
     Indication: Product used for unknown indication
     Dosage: 100 MG, BID
     Route: 048
     Dates: start: 20210914
  16. VITAMIN D2 [Concomitant]
     Active Substance: ERGOCALCIFEROL
     Indication: Product used for unknown indication
     Dosage: 1 DF, QW (50000 UNITS)
     Route: 048
     Dates: start: 20240617
  17. VITAMINS [Concomitant]
     Active Substance: VITAMINS
     Indication: Product used for unknown indication
     Dosage: 1 DF, QD
     Route: 048
  18. COMBIVENT RESPIMAT [Concomitant]
     Active Substance: ALBUTEROL SULFATE\IPRATROPIUM BROMIDE
     Indication: Asthma
     Dosage: 1 DF, Q4HR 100 MCG/ACTUATION (1 PUFF EVERY 4 HOURS AS NEEDED)
     Route: 045
     Dates: start: 20240423
  19. COMBIVENT RESPIMAT [Concomitant]
     Active Substance: ALBUTEROL SULFATE\IPRATROPIUM BROMIDE
     Indication: Wheezing
     Dosage: 1 DF, Q4HR 20-100 MCG/ACTUATION (1 PUFF EVERY 4 HOURS AS NEEDED)
     Route: 045
  20. COMBIVENT RESPIMAT [Concomitant]
     Active Substance: ALBUTEROL SULFATE\IPRATROPIUM BROMIDE
     Indication: Dyspnoea
  21. ZESTRIL [Concomitant]
     Active Substance: LISINOPRIL
     Indication: Hypertension
     Dosage: 20 MG, QD
     Route: 048
     Dates: start: 20220714
  22. ZESTRIL [Concomitant]
     Active Substance: LISINOPRIL
     Indication: Secondary hypertension
     Dosage: 1 DF, QD (10 MG TABLET)
     Route: 048
     Dates: start: 20220113, end: 20240719
  23. A VITE [Concomitant]
     Indication: Product used for unknown indication
     Dosage: 1 DF, QD (WITH BREAKFAST)
     Route: 048
  24. FISH OIL [Concomitant]
     Active Substance: FISH OIL
     Indication: Product used for unknown indication
     Dosage: 2 G, QD (300-1000 MG CAPSULE)
     Route: 048
  25. VENTOLIN HFA [Concomitant]
     Active Substance: ALBUTEROL SULFATE
     Indication: Asthma
     Dosage: 90 MCG/ACTUATION INHALER (INHALE 1 PUFF IN EVERY 6 HOURS)
     Route: 048
     Dates: start: 20240423, end: 20240826
  26. LANTUS [Concomitant]
     Active Substance: INSULIN GLARGINE
     Indication: Type 2 diabetes mellitus
     Dosage: 10 IU, QD (INJECT 10 UNITS UNDER THE SKIN EVERY NIGHT)
     Route: 058
     Dates: start: 20240628, end: 20240717
  27. LANTUS [Concomitant]
     Active Substance: INSULIN GLARGINE
     Indication: Chronic kidney disease
  28. FLAGYL [Concomitant]
     Active Substance: METRONIDAZOLE\METRONIDAZOLE HYDROCHLORIDE
     Indication: Trichomoniasis
     Dosage: 2 G
     Route: 048
     Dates: start: 20230228, end: 20240719
  29. NICODERM CQ [Concomitant]
     Active Substance: NICOTINE
     Indication: Product used for unknown indication
     Dosage: 1 DF, QD
     Route: 062
  30. TYLENOL [Concomitant]
     Active Substance: ACETAMINOPHEN
     Indication: Pain
     Dosage: 1000 MG, QD
     Route: 048
     Dates: start: 20240628
  31. SEMGLEE [Concomitant]
     Indication: Product used for unknown indication
     Dosage: 10 IU, QD
     Route: 058
     Dates: start: 20240628
  32. HUMULIN R [Concomitant]
     Active Substance: INSULIN HUMAN
     Indication: Product used for unknown indication
     Dosage: 100 UNITS IN SODIUM CHLORIDE 0.9 PERCENT 100 ML (1 UNIT/ML)
     Route: 042
  33. CHOLECALCIFEROL [Concomitant]
     Active Substance: CHOLECALCIFEROL
     Indication: Product used for unknown indication
     Dosage: 50000 UNT
     Route: 065
  34. SODIUM CHLORIDE [Concomitant]
     Active Substance: SODIUM CHLORIDE
     Indication: Product used for unknown indication
     Dosage: 500 ML, QD
     Route: 042
     Dates: start: 20240628
  35. SODIUM CHLORIDE [Concomitant]
     Active Substance: SODIUM CHLORIDE
     Dosage: 1000 ML, QD
     Route: 042
     Dates: start: 20240628

REACTIONS (42)
  - Renal cyst haemorrhage [Unknown]
  - Type 2 diabetes mellitus [Not Recovered/Not Resolved]
  - Blood glucose increased [Recovering/Resolving]
  - Groin pain [Not Recovered/Not Resolved]
  - Skin warm [Unknown]
  - Carbon dioxide decreased [Not Recovered/Not Resolved]
  - Blood chloride decreased [Not Recovered/Not Resolved]
  - Blood chloride increased [Not Recovered/Not Resolved]
  - Chills [Unknown]
  - Lipase increased [Unknown]
  - Blood bicarbonate abnormal [Unknown]
  - Mean cell haemoglobin increased [Unknown]
  - Blood lactic acid increased [Unknown]
  - Blood pH decreased [Unknown]
  - Glycosylated haemoglobin increased [Unknown]
  - Hepatic steatosis [Unknown]
  - Hepatomegaly [Unknown]
  - Spinal osteoarthritis [Unknown]
  - Spinal osteoarthritis [Unknown]
  - Kidney enlargement [Unknown]
  - Glucose urine present [Unknown]
  - Abdominal pain lower [Unknown]
  - Dysuria [Unknown]
  - Blood sodium decreased [Not Recovered/Not Resolved]
  - Red blood cell count decreased [Unknown]
  - Vomiting [Unknown]
  - Blood urea increased [Not Recovered/Not Resolved]
  - Blood creatinine increased [Recovering/Resolving]
  - Nausea [Unknown]
  - Pyrexia [Unknown]
  - Glomerular filtration rate decreased [Not Recovered/Not Resolved]
  - Weight decreased [Unknown]
  - Dry skin [Unknown]
  - Hyperglycaemia [Unknown]
  - Constipation [Unknown]
  - Dry mouth [Not Recovered/Not Resolved]
  - Pollakiuria [Not Recovered/Not Resolved]
  - Alanine aminotransferase increased [Recovered/Resolved]
  - Aspartate aminotransferase increased [Recovered/Resolved]
  - Diarrhoea [Unknown]
  - Thirst [Unknown]
  - Underdose [Unknown]

NARRATIVE: CASE EVENT DATE: 20220526
